FAERS Safety Report 13862792 (Version 1)
Quarter: 2017Q3

REPORT INFORMATION
  Report Type: Spontaneous
  Country: FR (occurrence: FR)
  Receive Date: 20170814
  Receipt Date: 20170814
  Transmission Date: 20171127
  Serious: Yes (Other)
  Sender: FDA-Public Use
  Company Number: FR-ACCORD-057172

PATIENT
  Age: 72 Year
  Sex: Male

DRUGS (11)
  1. POLARAMINE [Concomitant]
     Active Substance: DEXCHLORPHENIRAMINE MALEATE
     Dosage: 5 MG/1 ML, 0.3571 DAILY?SOLUTION INJECTABLE
     Route: 042
     Dates: start: 20170221
  2. CALCIUM LEVOFOLINATE ZENTIVA [Concomitant]
     Active Substance: LEVOLEUCOVORIN CALCIUM
     Dates: start: 20170221
  3. ALPRAZOLAM. [Concomitant]
     Active Substance: ALPRAZOLAM
  4. DOXYCYCLINE. [Suspect]
     Active Substance: DOXYCYCLINE
     Indication: PRODUCT USED FOR UNKNOWN INDICATION
     Route: 048
     Dates: start: 20170403
  5. FLUOROURACIL ACCORD [Suspect]
     Active Substance: FLUOROURACIL
     Indication: ADENOCARCINOMA OF COLON
     Dosage: 800 MG ONCE IN 2 WEEKS
     Route: 042
     Dates: start: 20170221
  6. OXALIPLATIN ACCORD [Suspect]
     Active Substance: OXALIPLATIN
     Indication: ADENOCARCINOMA OF COLON
     Route: 042
     Dates: start: 20170221, end: 20170404
  7. EMEND [Concomitant]
     Active Substance: APREPITANT
     Dosage: 0.3571 DAILY?THEN 80 MG ON DAY 2 AND ON DAY 3,
     Route: 048
  8. VECTIBIX [Suspect]
     Active Substance: PANITUMUMAB
     Indication: ADENOCARCINOMA OF COLON
     Dosage: 20 MG/ML (580 MG ONCE IN 2 WEEKS)
     Route: 042
     Dates: start: 20170221
  9. ONDANSETRON ACCORD [Concomitant]
     Active Substance: ONDANSETRON
     Dosage: AT THE POSOLOGY OF 5.7143 DAILY
  10. SOLU-MEDROL [Concomitant]
     Active Substance: METHYLPREDNISOLONE SODIUM SUCCINATE
     Dosage: 40 MG/2 ML, 5.7143?LYOPHILISATE AND SOLUTION FOR PARENTERAL USE
     Route: 042
     Dates: start: 20170221
  11. METOCLOPRAMIDE. [Concomitant]
     Active Substance: METOCLOPRAMIDE
     Dosage: URING THE FIRST 3 DAYS OF CHEMOTHERAPY

REACTIONS (3)
  - Ectropion [Not Recovered/Not Resolved]
  - Neuropathy peripheral [Not Recovered/Not Resolved]
  - Eyelid ptosis [Not Recovered/Not Resolved]

NARRATIVE: CASE EVENT DATE: 201703
